FAERS Safety Report 23604792 (Version 2)
Quarter: 2024Q2

REPORT INFORMATION
  Report Type: Spontaneous
  Country: CN (occurrence: CN)
  Receive Date: 20240307
  Receipt Date: 20240507
  Transmission Date: 20240716
  Serious: Yes (Other)
  Sender: FDA-Public Use
  Company Number: None

PATIENT
  Age: 52 Year
  Sex: Male

DRUGS (13)
  1. PREDNISOLONE [Suspect]
     Active Substance: PREDNISOLONE
     Indication: Angioimmunoblastic T-cell lymphoma stage III
     Dosage: 500 MILLIGRAM, CYCLICAL (100 MG/DAY, DAYS 1-5) CMOP REGIMEN
     Route: 065
     Dates: start: 202202, end: 202210
  2. PREDNISOLONE [Suspect]
     Active Substance: PREDNISOLONE
     Indication: Angioimmunoblastic T-cell lymphoma
     Dosage: 100 MILLIGRAM, CYCLICAL(PART OF CMOP REGIMEN; RECEIVED ON DAYS 1 TO 5)
     Route: 065
  3. VINCRISTINE [Suspect]
     Active Substance: VINCRISTINE
     Indication: Angioimmunoblastic T-cell lymphoma stage III
     Dosage: UNK
     Route: 065
     Dates: start: 20220515, end: 202205
  4. VINCRISTINE [Suspect]
     Active Substance: VINCRISTINE
     Indication: Angioimmunoblastic T-cell lymphoma stage IV
     Dosage: 1.4 MILLIGRAM/SQ. METER, CYCLICAL (1.4 MG/M2, DAY 1) CMOP REGIMEN
     Route: 065
     Dates: start: 202203, end: 202210
  5. VINCRISTINE [Suspect]
     Active Substance: VINCRISTINE
     Indication: Angioimmunoblastic T-cell lymphoma
  6. MITOXANTRONE HYDROCHLORIDE [Suspect]
     Active Substance: MITOXANTRONE HYDROCHLORIDE
     Indication: Angioimmunoblastic T-cell lymphoma stage III
     Dosage: UNK
     Route: 065
     Dates: start: 20220515, end: 202205
  7. MITOXANTRONE HYDROCHLORIDE [Suspect]
     Active Substance: MITOXANTRONE HYDROCHLORIDE
     Indication: Angioimmunoblastic T-cell lymphoma
     Dosage: 17 MILLIGRAM/SQ. METER, CYCLICAL (17 MG/M2, DAY 1) (LIPOSOMES) CMOP REGIMEN
     Route: 065
     Dates: start: 202207, end: 202210
  8. MITOXANTRONE HYDROCHLORIDE [Suspect]
     Active Substance: MITOXANTRONE HYDROCHLORIDE
     Indication: Angioimmunoblastic T-cell lymphoma stage IV
  9. CYCLOPHOSPHAMIDE [Suspect]
     Active Substance: CYCLOPHOSPHAMIDE
     Indication: Angioimmunoblastic T-cell lymphoma stage III
     Dosage: UNK
     Route: 065
     Dates: start: 20220515, end: 202205
  10. CYCLOPHOSPHAMIDE [Suspect]
     Active Substance: CYCLOPHOSPHAMIDE
     Indication: Angioimmunoblastic T-cell lymphoma stage IV
     Dosage: 525 MILLIGRAM/SQ. METER, CYCLICAL (525 MG/M2, DAY 1) CMOP REGIMEN
     Route: 065
     Dates: start: 202207, end: 202210
  11. CYCLOPHOSPHAMIDE [Suspect]
     Active Substance: CYCLOPHOSPHAMIDE
     Indication: Angioimmunoblastic T-cell lymphoma
  12. THALIDOMIDE [Concomitant]
     Active Substance: THALIDOMIDE
     Indication: Angioimmunoblastic T-cell lymphoma stage III
     Dosage: 100 MILLIGRAM, QD (100 MG ONCE DAILY) CMOP REGIMEN
     Route: 065
     Dates: start: 202202
  13. THALIDOMIDE [Concomitant]
     Active Substance: THALIDOMIDE
     Indication: Angioimmunoblastic T-cell lymphoma

REACTIONS (3)
  - Haematotoxicity [Unknown]
  - Skin hyperpigmentation [Recovered/Resolved]
  - Nausea [Unknown]

NARRATIVE: CASE EVENT DATE: 20220101
